FAERS Safety Report 19506405 (Version 1)
Quarter: 2021Q3

REPORT INFORMATION
  Report Type: Spontaneous
  Country: KR (occurrence: KR)
  Receive Date: 20210708
  Receipt Date: 20210708
  Transmission Date: 20211014
  Serious: Yes (Hospitalization, Other)
  Sender: FDA-Public Use
  Company Number: KR-NEXUS PHARMA-000044

PATIENT
  Age: 69 Year
  Sex: Male
  Weight: 64.4 kg

DRUGS (12)
  1. DOPAMINE [Suspect]
     Active Substance: DOPAMINE HYDROCHLORIDE
     Indication: HYPOTENSION
     Dosage: STARTED AT A RATE OF 5MCG/KG/MIN
  2. FENTANYL. [Concomitant]
     Active Substance: FENTANYL
  3. EPHEDRINE. [Suspect]
     Active Substance: EPHEDRINE
     Indication: HYPOTENSION
  4. PYRIDOSTIGMINE [Concomitant]
     Active Substance: PYRIDOSTIGMINE
  5. REMIFENTANIL/REMIFENTANIL HYDROCHLORIDE [Concomitant]
     Active Substance: REMIFENTANIL HYDROCHLORIDE
     Dosage: 1 TO 3NG/ML
  6. LIDOCAINE. [Concomitant]
     Active Substance: LIDOCAINE
     Route: 042
  7. GLYCOPYRRONIUM [Concomitant]
     Active Substance: GLYCOPYRRONIUM
  8. PROPOFOL. [Concomitant]
     Active Substance: PROPOFOL
     Indication: ANAESTHESIA
     Dosage: 2.5 TO 3.0MCG/ML
     Route: 042
  9. SUGAMMADEX [Concomitant]
     Active Substance: SUGAMMADEX
  10. MIDAZOLAM. [Concomitant]
     Active Substance: MIDAZOLAM
     Indication: HYPOTENSION
  11. ROCURONIUM/ROCURONIUM BROMIDE [Concomitant]
     Active Substance: ROCURONIUM BROMIDE
     Indication: MUSCLE RELAXANT THERAPY
     Dosage: 5 MCG/KG/MIN
  12. NOREPINEPHRINE. [Concomitant]
     Active Substance: NOREPINEPHRINE
     Indication: HYPOTENSION
     Dosage: RATE OF 0. 5MCG/KG/MIN

REACTIONS (1)
  - Ventricular tachycardia [Recovered/Resolved]
